FAERS Safety Report 6565060-0 (Version None)
Quarter: 2010Q1

REPORT INFORMATION
  Report Type: 
  Country: None (occurrence: None)
  Receive Date: 20100201
  Receipt Date: 20100118
  Transmission Date: 20100710
  Serious: Yes (Hospitalization)
  Sender: FDA-Public Use
  Company Number: FR-ASTRAZENECA-2010SE02707

PATIENT
  Age: 30964 Day
  Sex: Male

DRUGS (11)
  1. OMEPRAZOLE [Suspect]
     Route: 048
     Dates: end: 20090624
  2. RIFADIN [Suspect]
     Indication: CYSTITIS
     Route: 048
     Dates: start: 20090424, end: 20090624
  3. RIMIFON [Suspect]
     Indication: CYSTITIS
     Route: 048
     Dates: start: 20090424, end: 20090624
  4. KARDEGIC [Suspect]
     Route: 048
     Dates: end: 20090627
  5. TRASICOR [Suspect]
     Route: 048
     Dates: end: 20090627
  6. COZAAR [Suspect]
     Route: 048
     Dates: end: 20090627
  7. ADANCOR [Concomitant]
     Route: 048
  8. PLAVIX [Concomitant]
     Route: 048
  9. FORLAX [Concomitant]
     Route: 048
  10. ARIXTRA [Concomitant]
     Dosage: 5 MG/0.4 ML
     Dates: end: 20090621
  11. ZOCOR [Concomitant]
     Route: 048

REACTIONS (1)
  - HAEMOLYSIS [None]
